FAERS Safety Report 8823274 (Version 1)
Quarter: 2012Q4

REPORT INFORMATION
  Report Type: 
  Country: SE (occurrence: SE)
  Receive Date: 20121003
  Receipt Date: 20121003
  Transmission Date: 20130627
  Serious: Yes (Other)
  Sender: FDA-Public Use
  Company Number: SE-GLAXOSMITHKLINE-B0834748A

PATIENT
  Sex: Male

DRUGS (2)
  1. DERMOVAT [Suspect]
     Indication: PRODUCT USED FOR UNKNOWN INDICATION
     Route: 065
     Dates: start: 2010, end: 20120701
  2. ELOCON [Suspect]
     Indication: PRODUCT USED FOR UNKNOWN INDICATION
     Route: 065
     Dates: start: 2010, end: 20120701

REACTIONS (2)
  - Adrenal insufficiency [Recovered/Resolved with Sequelae]
  - Eczema [Unknown]
